FAERS Safety Report 4585546-8 (Version None)
Quarter: 2005Q1

REPORT INFORMATION
  Report Type: 
  Country: None (occurrence: None)
  Receive Date: 20050214
  Receipt Date: 20050131
  Transmission Date: 20050727
  Serious: Yes (Hospitalization, Other)
  Sender: FDA-Public Use
  Company Number: HQWYE023415SEP04

PATIENT
  Age: 65 Year
  Sex: Male
  Weight: 83.54 kg

DRUGS (10)
  1. RAPAMUNE [Suspect]
     Indication: PROPHYLAXIS AGAINST TRANSPLANT REJECTION
     Dosage: 5 MG 1X PER 1 DAY, ORAL
     Route: 048
     Dates: start: 20040128
  2. PROGRAF [Concomitant]
  3. PREDNISONE [Concomitant]
  4. NORVASC [Concomitant]
  5. TOPROL-XL [Concomitant]
  6. VALCYTE [Concomitant]
  7. GLUCOTROL [Concomitant]
  8. MYCELEX [Concomitant]
  9. RESTORIL [Concomitant]
  10. DARVOCET-N 50 [Concomitant]

REACTIONS (13)
  - ARTERIOPATHIC DISEASE [None]
  - BLOOD CREATININE INCREASED [None]
  - BLOOD POTASSIUM DECREASED [None]
  - BLOOD UREA INCREASED [None]
  - GRAFT DYSFUNCTION [None]
  - GRAFT VERSUS HOST DISEASE [None]
  - HAEMATOCRIT DECREASED [None]
  - HAEMOGLOBIN DECREASED [None]
  - IMMUNOSUPPRESSANT DRUG LEVEL DECREASED [None]
  - PCO2 DECREASED [None]
  - RED BLOOD CELL COUNT DECREASED [None]
  - RENAL TUBULAR NECROSIS [None]
  - THROMBOTIC MICROANGIOPATHY [None]
